FAERS Safety Report 8539735-8 (Version None)
Quarter: 2012Q3

REPORT INFORMATION
  Report Type: 
  Country: None (occurrence: None)
  Receive Date: 20120726
  Receipt Date: 20110826
  Transmission Date: 20120928
  Serious: No
  Sender: FDA-Public Use
  Company Number: US-ASTRAZENECA-2003UW16507

PATIENT
  Age: 62 Year
  Sex: Female
  Weight: 98.4 kg

DRUGS (11)
  1. PREMPRO [Concomitant]
  2. BUPROPOIN SR [Concomitant]
  3. SEROQUEL [Suspect]
     Route: 048
     Dates: start: 20030401
  4. TRILITIX DR [Concomitant]
     Indication: HYPERCHOLESTEROLAEMIA
  5. WELLBUTRIN [Concomitant]
  6. SEROQUEL [Suspect]
     Indication: DEPRESSION
     Route: 048
     Dates: start: 20010101
  7. ZONEGRAN [Concomitant]
  8. LUNESTA [Concomitant]
     Indication: SLEEP DISORDER
  9. OMEPRAZOLE [Concomitant]
     Indication: GASTROOESOPHAGEAL REFLUX DISEASE
  10. SEROQUEL [Suspect]
     Indication: BIPOLAR I DISORDER
     Route: 048
     Dates: start: 20010101
  11. SEROQUEL [Suspect]
     Route: 048
     Dates: start: 20030401

REACTIONS (12)
  - COUGH [None]
  - WEIGHT INCREASED [None]
  - EAR PRURITUS [None]
  - HYPOAESTHESIA [None]
  - MEMORY IMPAIRMENT [None]
  - EYE PRURITUS [None]
  - IMPAIRED DRIVING ABILITY [None]
  - CONSTIPATION [None]
  - BLOOD CHOLESTEROL ABNORMAL [None]
  - SNEEZING [None]
  - DISORIENTATION [None]
  - SEASONAL ALLERGY [None]
